FAERS Safety Report 13101886 (Version 1)
Quarter: 2017Q1

REPORT INFORMATION
  Report Type: Spontaneous
  Country: US (occurrence: US)
  Receive Date: 20170110
  Receipt Date: 20170110
  Transmission Date: 20170428
  Serious: Yes (Life-Threatening, Hospitalization)
  Sender: FDA-Public Use
  Company Number: None

PATIENT
  Age: 47 Year
  Sex: Male

DRUGS (4)
  1. METOPROLOL TARTRATE. [Concomitant]
     Active Substance: METOPROLOL TARTRATE
  2. DULOXETINE. [Concomitant]
     Active Substance: DULOXETINE
  3. MIRTAZEPINE [Suspect]
     Active Substance: MIRTAZAPINE
     Indication: ANXIETY DISORDER
     Route: 048
  4. MIRTAZEPINE [Suspect]
     Active Substance: MIRTAZAPINE
     Indication: POST-TRAUMATIC STRESS DISORDER
     Route: 048

REACTIONS (2)
  - Electrocardiogram QT prolonged [None]
  - Ventricular tachycardia [None]

NARRATIVE: CASE EVENT DATE: 20170106
